FAERS Safety Report 24080746 (Version 1)
Quarter: 2024Q3

REPORT INFORMATION
  Report Type: Spontaneous
  Country: GB (occurrence: GB)
  Receive Date: 20240711
  Receipt Date: 20240711
  Transmission Date: 20241017
  Serious: Yes (Other)
  Sender: DR REDDYS
  Company Number: None

PATIENT
  Sex: Male

DRUGS (1)
  1. MONTELUKAST [Suspect]
     Active Substance: MONTELUKAST SODIUM
     Indication: Asthma

REACTIONS (5)
  - Hallucination [Not Recovered/Not Resolved]
  - Nightmare [Not Recovered/Not Resolved]
  - Insomnia [Not Recovered/Not Resolved]
  - Emotional disorder [Not Recovered/Not Resolved]
  - Anger [Not Recovered/Not Resolved]
